FAERS Safety Report 14286080 (Version 1)
Quarter: 2017Q4

REPORT INFORMATION
  Report Type: Spontaneous
  Country: US (occurrence: US)
  Receive Date: 20171214
  Receipt Date: 20171214
  Transmission Date: 20180321
  Serious: No
  Sender: FDA-Public Use
  Company Number: US-BAYER-2017-234108

PATIENT
  Age: 28 Year
  Sex: Male
  Weight: 68 kg

DRUGS (1)
  1. MIRALAX [Suspect]
     Active Substance: POLYETHYLENE GLYCOL 3350
     Indication: GASTROINTESTINAL DISORDER
     Dosage: 1 DF, 5-7 DAYS A WEEK DOSE
     Route: 048
     Dates: start: 2014

REACTIONS (2)
  - Product use complaint [None]
  - Poor quality drug administered [Unknown]
